FAERS Safety Report 21178479 (Version 1)
Quarter: 2022Q3

REPORT INFORMATION
  Report Type: Spontaneous
  Country: RU (occurrence: RU)
  Receive Date: 20220805
  Receipt Date: 20220805
  Transmission Date: 20221027
  Serious: Yes (Congenital Anomaly, Other)
  Sender: FDA-Public Use
  Company Number: RU-FreseniusKabi-FK202210585

PATIENT
  Age: 41 Year
  Sex: Female

DRUGS (2)
  1. CARBOPLATIN [Suspect]
     Active Substance: CARBOPLATIN
     Indication: Chemotherapy
     Dosage: COURSE REGIMEN EVERY 21 DAYS
     Route: 065
  2. PACLITAXEL [Suspect]
     Active Substance: PACLITAXEL
     Indication: Chemotherapy
     Dosage: COURSE REGIMEN EVERY 21 DAYS
     Route: 065

REACTIONS (3)
  - Bloody discharge [Unknown]
  - Exposure during pregnancy [Unknown]
  - Abdominal pain lower [Unknown]
